FAERS Safety Report 9568311 (Version 1)
Quarter: 2013Q3

REPORT INFORMATION
  Report Type: Spontaneous
  Country: US (occurrence: US)
  Receive Date: 20130930
  Receipt Date: 20130930
  Transmission Date: 20140515
  Serious: No
  Sender: FDA-Public Use
  Company Number: US-AMGEN-USASP2013053525

PATIENT
  Age: 46 Year
  Sex: Female
  Weight: 79.37 kg

DRUGS (2)
  1. ENBREL [Suspect]
     Indication: PRODUCT USED FOR UNKNOWN INDICATION
     Dosage: 50 MG, TWICE A WEEK
     Route: 058
  2. HUMIRA [Concomitant]
     Indication: PSORIASIS
     Dosage: 40MG/0.8, UNK
     Route: 058

REACTIONS (1)
  - Psoriasis [Unknown]
